FAERS Safety Report 7914515-2 (Version None)
Quarter: 2011Q4

REPORT INFORMATION
  Report Type: 
  Country: None (occurrence: None)
  Receive Date: 20111115
  Receipt Date: 20111031
  Transmission Date: 20120403
  Serious: Yes (Other)
  Sender: FDA-Public Use
  Company Number: PHHY2011FR57389

PATIENT
  Sex: Female
  Weight: 60 kg

DRUGS (10)
  1. ILARIS [Suspect]
     Dosage: 150 MG
     Dates: start: 20110708
  2. ACETAMINOPHEN AND CODEINE PHOSPHATE [Concomitant]
  3. ILARIS [Suspect]
     Dosage: 150 MG
     Dates: start: 20110823
  4. CALCIUM CARBONATE [Concomitant]
  5. ILARIS [Suspect]
     Indication: STILL'S DISEASE ADULT ONSET
     Dosage: 150 MG EVERY 8 WEEKS
     Route: 058
     Dates: start: 20110318
  6. ILARIS [Suspect]
     Indication: JUVENILE ARTHRITIS
     Dosage: 150 MG
     Route: 058
     Dates: start: 20110513
  7. PREDNISONE [Concomitant]
     Dosage: 10 MG DAILY
  8. JOSACINE [Concomitant]
     Dates: start: 20110625
  9. JOSACINE [Concomitant]
     Dosage: UNK
     Dates: start: 20111001, end: 20111006
  10. ESOMEPRAZOLE [Concomitant]
     Dosage: 20 MG DAILY

REACTIONS (23)
  - CYTOLYTIC HEPATITIS [None]
  - C-REACTIVE PROTEIN INCREASED [None]
  - ABDOMINAL PAIN UPPER [None]
  - ODYNOPHAGIA [None]
  - GAMMA-GLUTAMYLTRANSFERASE INCREASED [None]
  - JUVENILE ARTHRITIS [None]
  - CHOLANGITIS [None]
  - ASPARTATE AMINOTRANSFERASE INCREASED [None]
  - ALANINE AMINOTRANSFERASE INCREASED [None]
  - PYREXIA [None]
  - DIARRHOEA [None]
  - ASTHENIA [None]
  - BILE DUCT STONE [None]
  - PRURITUS [None]
  - DIVERTICULUM INTESTINAL [None]
  - DYSPNOEA EXERTIONAL [None]
  - BILIARY DILATATION [None]
  - CHOLESTASIS [None]
  - ARTHRALGIA [None]
  - CHOLECYSTITIS CHRONIC [None]
  - TOOTH ABSCESS [None]
  - BLOOD ALKALINE PHOSPHATASE INCREASED [None]
  - CHOLELITHIASIS [None]
